FAERS Safety Report 25033327 (Version 1)
Quarter: 2025Q1

REPORT INFORMATION
  Report Type: Spontaneous
  Country: RO (occurrence: RO)
  Receive Date: 20250303
  Receipt Date: 20250303
  Transmission Date: 20250408
  Serious: Yes (Death, Other)
  Sender: GILEAD
  Company Number: RO-GILEAD-2025-0705894

PATIENT
  Age: 56 Year
  Sex: Female

DRUGS (1)
  1. TRODELVY [Suspect]
     Active Substance: SACITUZUMAB GOVITECAN-HZIY
     Indication: Triple negative breast cancer
     Route: 065

REACTIONS (2)
  - Nausea [Fatal]
  - Neutropenia [Fatal]

NARRATIVE: CASE EVENT DATE: 20240911
